FAERS Safety Report 7436778-2 (Version None)
Quarter: 2011Q2

REPORT INFORMATION
  Report Type: 
  Country: None (occurrence: None)
  Receive Date: 20110426
  Receipt Date: 20110418
  Transmission Date: 20111010
  Serious: Yes (Other)
  Sender: FDA-Public Use
  Company Number: US-ASTELLAS-2011US001635

PATIENT
  Sex: Male

DRUGS (1)
  1. PROGRAF [Suspect]
     Indication: LIVER TRANSPLANT
     Dosage: 2 MG, BID
     Route: 065

REACTIONS (5)
  - TREATMENT NONCOMPLIANCE [None]
  - NEPHROLITHIASIS [None]
  - HYDRONEPHROSIS [None]
  - DRUG INEFFECTIVE [None]
  - LIVER TRANSPLANT REJECTION [None]
